FAERS Safety Report 21202945 (Version 6)
Quarter: 2023Q1

REPORT INFORMATION
  Report Type: Spontaneous
  Country: US (occurrence: US)
  Receive Date: 20220811
  Receipt Date: 20230216
  Transmission Date: 20230417
  Serious: Yes (Other)
  Sender: FDA-Public Use
  Company Number: US-PFIZER INC-PV202200040709

PATIENT
  Age: 62 Year
  Sex: Female

DRUGS (1)
  1. IBRANCE [Suspect]
     Active Substance: PALBOCICLIB
     Dosage: UNK

REACTIONS (10)
  - Neuropathy peripheral [Unknown]
  - Cholecystectomy [Unknown]
  - Product dose omission issue [Unknown]
  - Diarrhoea [Unknown]
  - Dyspnoea [Unknown]
  - Abnormal dreams [Unknown]
  - Dyskinesia [Unknown]
  - Skin exfoliation [Unknown]
  - Dry skin [Unknown]
  - Fatigue [Unknown]

NARRATIVE: CASE EVENT DATE: 20220101
